FAERS Safety Report 12550152 (Version 1)
Quarter: 2016Q3

REPORT INFORMATION
  Report Type: Spontaneous
  Country: GB (occurrence: GB)
  Receive Date: 20160712
  Receipt Date: 20160712
  Transmission Date: 20161109
  Serious: Yes (Hospitalization)
  Sender: FDA-Public Use
  Company Number: GB-BAYER-2016-135264

PATIENT
  Age: 80 Year
  Sex: Female

DRUGS (10)
  1. WAL PROFEN COLD AND SINUS [Concomitant]
     Active Substance: IBUPROFEN\PSEUDOEPHEDRINE HYDROCHLORIDE
     Dosage: 1 DF, BID
     Route: 048
  2. DOCUSATE [Concomitant]
     Active Substance: DOCUSATE
     Dosage: 100 MG, BID
     Route: 048
  3. LANSOPRAZOLE. [Concomitant]
     Active Substance: LANSOPRAZOLE
     Dosage: 15 MG, BID
  4. AMLODIPINE [Concomitant]
     Active Substance: AMLODIPINE BESYLATE
     Dosage: 5 MG, QD
     Route: 048
  5. ACETYLSALICYLIC ACID (} 100 MG) [Suspect]
     Active Substance: ASPIRIN
     Dosage: UNK
     Route: 048
     Dates: end: 20160617
  6. MOVICOL [Concomitant]
     Active Substance: POLYETHYLENE GLYCOL 3350\POTASSIUM CHLORIDE\SODIUM BICARBONATE\SODIUM CHLORIDE
     Route: 048
  7. PARACETAMOL [Concomitant]
     Active Substance: ACETAMINOPHEN
     Dosage: UNK UNK, PRN
     Route: 048
  8. PERINDOPRIL [Suspect]
     Active Substance: PERINDOPRIL
     Dosage: 4 MG, QD
     Route: 048
     Dates: end: 20160607
  9. ALLOPURINOL. [Concomitant]
     Active Substance: ALLOPURINOL
     Dosage: 100 MG, QD
     Route: 048
  10. DIHYDROCODEINE [Concomitant]
     Active Substance: DIHYDROCODEINE
     Dosage: 30 MG, PRN
     Route: 048

REACTIONS (5)
  - Haematochezia [Recovered/Resolved]
  - Abnormal loss of weight [Unknown]
  - Anaemia [Recovered/Resolved]
  - Acute kidney injury [Unknown]
  - Haemoglobin decreased [Unknown]
